FAERS Safety Report 23098463 (Version 1)
Quarter: 2023Q4

REPORT INFORMATION
  Report Type: Spontaneous
  Country: CN (occurrence: CN)
  Receive Date: 20231023
  Receipt Date: 20231023
  Transmission Date: 20240110
  Serious: Yes (Other)
  Sender: FDA-Public Use
  Company Number: CN-PFIZER INC-202300336104

PATIENT
  Sex: Female

DRUGS (1)
  1. LORBRENA [Suspect]
     Active Substance: LORLATINIB
     Dosage: UNK
     Route: 048
     Dates: start: 202306

REACTIONS (2)
  - Carcinoembryonic antigen increased [Unknown]
  - Pulmonary calcification [Unknown]

NARRATIVE: CASE EVENT DATE: 20231001
